FAERS Safety Report 16126975 (Version 1)
Quarter: 2019Q1

REPORT INFORMATION
  Report Type: Spontaneous
  Country: US (occurrence: US)
  Receive Date: 20190222
  Receipt Date: 20190222
  Transmission Date: 20190418
  Serious: Yes (Life-Threatening, Hospitalization, Disabling, Other)
  Sender: FDA-Public Use
  Company Number: None

PATIENT
  Age: 41 Year
  Sex: Female
  Weight: 51.75 kg

DRUGS (9)
  1. HYDROCORTISONE. [Suspect]
     Active Substance: HYDROCORTISONE
     Indication: ADDISON^S DISEASE
     Dosage: ?          QUANTITY:2.5 TABLET(S);?
     Route: 048
     Dates: start: 20010101, end: 20190222
  2. CHINESE HERBS [Concomitant]
     Active Substance: HERBALS
  3. FLUDROCORTISONE [Suspect]
     Active Substance: FLUDROCORTISONE
  4. VITAMIN B12 [Concomitant]
     Active Substance: CYANOCOBALAMIN
  5. CUR-CUMIN [Concomitant]
  6. ARMOUR THYROID [Suspect]
     Active Substance: THYROID, PORCINE
  7. VITAMIN C [Concomitant]
     Active Substance: ASCORBIC ACID
  8. FOLATE [Concomitant]
     Active Substance: FOLATE SODIUM
  9. MAGNESIUM [Concomitant]
     Active Substance: MAGNESIUM

REACTIONS (13)
  - Fracture [None]
  - Quality of life decreased [None]
  - Road traffic accident [None]
  - Anxiety [None]
  - Depression [None]
  - Feeling abnormal [None]
  - Eye colour change [None]
  - Aggression [None]
  - Adverse event [None]
  - Abdominal pain upper [None]
  - Pain [None]
  - Speech disorder [None]
  - Gait disturbance [None]

NARRATIVE: CASE EVENT DATE: 20190222
